FAERS Safety Report 19552530 (Version 1)
Quarter: 2021Q3

REPORT INFORMATION
  Report Type: Spontaneous
  Country: ES (occurrence: ES)
  Receive Date: 20210715
  Receipt Date: 20210715
  Transmission Date: 20211014
  Serious: Yes (Hospitalization, Other)
  Sender: FDA-Public Use
  Company Number: GXKR2004ES00871

PATIENT
  Age: 37 Year
  Sex: Female

DRUGS (4)
  1. ACETYLCYSTEINE. [Suspect]
     Active Substance: ACETYLCYSTEINE
     Indication: POISONING
     Dosage: 150 MG/KG, ONCE/SINGLE OVER 15 MIN.
     Route: 042
  2. ACETYLCYSTEINE. [Suspect]
     Active Substance: ACETYLCYSTEINE
     Dosage: 50 MG/KG OVER 2 HOURS
     Route: 042
  3. ACETYLCYSTEINE. [Suspect]
     Active Substance: ACETYLCYSTEINE
     Dosage: 100MG/KG OVER 20 H
     Route: 065
  4. PARACETAMOL [Suspect]
     Active Substance: ACETAMINOPHEN
     Indication: PRODUCT USED FOR UNKNOWN INDICATION
     Dosage: 26 G, UNKNOWN
     Route: 048

REACTIONS (10)
  - Nausea [Recovered/Resolved]
  - Erythema [Unknown]
  - Pruritus [Recovered/Resolved]
  - Anaphylactoid reaction [Recovered/Resolved]
  - Suicide attempt [Unknown]
  - Face oedema [Recovered/Resolved]
  - Intentional overdose [Unknown]
  - Hypertransaminasaemia [Recovered/Resolved]
  - Abdominal pain upper [Recovered/Resolved]
  - Eyelid oedema [Unknown]
